FAERS Safety Report 8483330-6 (Version None)
Quarter: 2012Q3

REPORT INFORMATION
  Report Type: 
  Country: None (occurrence: None)
  Receive Date: 20120702
  Receipt Date: 20120628
  Transmission Date: 20120928
  Serious: No
  Sender: FDA-Public Use
  Company Number: US-PFIZER INC-2012138597

PATIENT
  Sex: Female
  Weight: 61 kg

DRUGS (1)
  1. IBUPROFEN (ADVIL) [Suspect]
     Indication: HEADACHE
     Dosage: 600 MG (3X 200 MG), AS NEEDED
     Route: 048

REACTIONS (5)
  - FOOD POISONING [None]
  - MALAISE [None]
  - HEADACHE [None]
  - POOR QUALITY DRUG ADMINISTERED [None]
  - NAUSEA [None]
